FAERS Safety Report 4429706-5 (Version None)
Quarter: 2004Q3

REPORT INFORMATION
  Report Type: 
  Country: None (occurrence: None)
  Receive Date: 20040816
  Receipt Date: 20040809
  Transmission Date: 20050211
  Serious: Yes (Other)
  Sender: FDA-Public Use
  Company Number: 2004-03528

PATIENT
  Age: 53 Year
  Sex: Male

DRUGS (11)
  1. FERRLECIT [Suspect]
     Dosage: SEE IMAGE
     Route: 042
     Dates: start: 19900101, end: 19950101
  2. FERRLECIT [Suspect]
     Dosage: SEE IMAGE
     Route: 042
     Dates: start: 20031201, end: 20040701
  3. ARANESP [Concomitant]
  4. CARMEN (LERCANIDIPINE) [Concomitant]
  5. BENALAPRIL (ENALAPRIL) [Concomitant]
  6. CYNT ^BEIERSDORF^ (MOXONIDINE) [Concomitant]
  7. PHOS-EX (CALCIUM ACETATE) [Concomitant]
  8. ANTI-PHOSPHAT (ALUMINIUM HYDROXIDE GEL) [Concomitant]
  9. NIFEDIPNE ^VERLA^ [Concomitant]
  10. BISOPROLOL FUMARATE [Concomitant]
  11. FURORESE [Concomitant]

REACTIONS (4)
  - HYPOTENSION [None]
  - LOSS OF CONSCIOUSNESS [None]
  - PULSE ABSENT [None]
  - SHOCK [None]
